FAERS Safety Report 7493698-5 (Version None)
Quarter: 2011Q2

REPORT INFORMATION
  Report Type: 
  Country: None (occurrence: None)
  Receive Date: 20110520
  Receipt Date: 20110510
  Transmission Date: 20111010
  Serious: Yes (Hospitalization)
  Sender: FDA-Public Use
  Company Number: JP-SANOFI-AVENTIS-2011SA023676

PATIENT
  Age: 75 Year
  Sex: Female

DRUGS (19)
  1. BEVACIZUMAB [Suspect]
     Indication: LARGE INTESTINE CARCINOMA
     Route: 041
     Dates: start: 20110323, end: 20110323
  2. NEUTROGIN [Concomitant]
  3. DEXAMETHASONE [Suspect]
     Route: 041
     Dates: start: 20110323, end: 20110407
  4. FIRSTCIN [Concomitant]
     Route: 042
  5. OMEPRAZOLE [Concomitant]
  6. FAMOTIDINE [Concomitant]
  7. LEUCOVORIN CALCIUM [Suspect]
     Route: 042
     Dates: start: 20110407, end: 20110407
  8. BEVACIZUMAB [Suspect]
     Route: 041
     Dates: start: 20110407, end: 20110407
  9. FLUOROURACIL [Suspect]
     Indication: LARGE INTESTINE CARCINOMA
     Route: 042
     Dates: start: 20110323
  10. LOXONIN [Suspect]
     Route: 048
     Dates: start: 20110112, end: 20110405
  11. NSAID'S [Concomitant]
  12. MORPHINE HCL ELIXIR [Concomitant]
  13. OCTREOTIDE ACETATE [Concomitant]
  14. OXALIPLATIN [Suspect]
     Route: 042
     Dates: start: 20110407, end: 20110407
  15. KYTRIL [Concomitant]
     Dates: start: 20110323, end: 20110407
  16. OXALIPLATIN [Suspect]
     Indication: LARGE INTESTINE CARCINOMA
     Route: 042
     Dates: start: 20110323, end: 20110323
  17. FLUOROURACIL [Suspect]
     Route: 042
     Dates: start: 20110407
  18. LEUCOVORIN CALCIUM [Suspect]
     Indication: LARGE INTESTINE CARCINOMA
     Route: 042
     Dates: start: 20110323, end: 20110323
  19. MUCOSTA [Concomitant]
     Dates: start: 20110112, end: 20110405

REACTIONS (3)
  - GASTROINTESTINAL PERFORATION [None]
  - WHITE BLOOD CELL COUNT DECREASED [None]
  - DIARRHOEA [None]
